FAERS Safety Report 16436657 (Version 2)
Quarter: 2019Q4

REPORT INFORMATION
  Report Type: Spontaneous
  Country: US (occurrence: US)
  Receive Date: 20190614
  Receipt Date: 20191118
  Transmission Date: 20200122
  Serious: No
  Sender: FDA-Public Use
  Company Number: US-JNJFOC-20170219040

PATIENT
  Age: 90 Year
  Sex: Male
  Weight: 79.45 kg

DRUGS (1)
  1. PARACETAMOL [Suspect]
     Active Substance: ACETAMINOPHEN
     Indication: BACK PAIN
     Dosage: TOOK ONLY 2 DAYS
     Route: 048

REACTIONS (1)
  - Drug ineffective [Unknown]
